FAERS Safety Report 25920147 (Version 1)
Quarter: 2025Q4

REPORT INFORMATION
  Report Type: Spontaneous
  Country: US (occurrence: None)
  Receive Date: 20251010
  Receipt Date: 20251010
  Transmission Date: 20260118
  Serious: Yes (Hospitalization)
  Sender: FDA-CTU
  Company Number: None

PATIENT
  Sex: Female

DRUGS (9)
  1. GAMMAGARD LIQUID [Suspect]
     Active Substance: HUMAN IMMUNOGLOBULIN G
     Indication: Immunodeficiency common variable
     Dosage: OTHER STRENGTH : 30/300 GM/M;?FREQUENCY : MONTHLY;?
     Route: 042
     Dates: start: 20250222
  2. METHYLPRED SOD SUCC SDV [Concomitant]
  3. NORMAL SALINE FLUSH (5ML) [Concomitant]
  4. DIPHENHYDRAMINE (ALLERGY ) [Concomitant]
  5. BACTERIOSTATIC WATER MDV [Concomitant]
  6. CETIRIZINE HCL [Concomitant]
     Active Substance: CETIRIZINE HYDROCHLORIDE
  7. SODIUM CHLOR (250ML/BAG) [Concomitant]
  8. ACETAMINOPHEN [Concomitant]
     Active Substance: ACETAMINOPHEN
  9. ONDANSETRON HYDROCHLORIDE [Concomitant]
     Active Substance: ONDANSETRON HYDROCHLORIDE

REACTIONS (1)
  - Urinary tract infection [None]
